FAERS Safety Report 12352558 (Version 13)
Quarter: 2016Q4

REPORT INFORMATION
  Report Type: Report from Study
  Country: None (occurrence: AT)
  Receive Date: 20160510
  Receipt Date: 20161229
  Transmission Date: 20170207
  Serious: Yes (Life-Threatening, Hospitalization)
  Sender: FDA-Public Use
  Company Number: AT-ABBVIE-16P-009-1581904-00

PATIENT
  Age: 72 Year
  Sex: Male
  Weight: 73 kg

DRUGS (31)
  1. MUCOBENE [Concomitant]
     Indication: COUGH
     Dates: start: 20160213, end: 20160301
  2. GLANDOMED [Concomitant]
     Indication: PROPHYLAXIS
     Dates: start: 20160228
  3. SUCRALAN [Concomitant]
     Indication: GASTROOESOPHAGEAL REFLUX DISEASE
     Dates: start: 20160423
  4. DOXORUBICIN [Suspect]
     Active Substance: DOXORUBICIN
     Indication: B-CELL LYMPHOMA
     Dosage: DOSES PRIOR TO SAES: 27FEB16; 18MAR16; 11APR16; 06MAY16; 27MAY16;16JUN16
     Route: 042
     Dates: start: 20160227
  5. VINCRISTINE [Suspect]
     Active Substance: VINCRISTINE
     Indication: B-CELL LYMPHOMA
     Dosage: DOSES PRIOR TO SAES: 27FEB16; 18MAR16; 11APR16; 06MAY16; 27MAY16;16JUN16
     Route: 042
     Dates: start: 20160227
  6. GUTTALAX [Concomitant]
     Indication: CONSTIPATION PROPHYLAXIS
     Dates: start: 20160215
  7. PASPERTIN [Concomitant]
     Active Substance: METOCLOPRAMIDE HYDROCHLORIDE
     Indication: PROPHYLAXIS OF NAUSEA AND VOMITING
     Dates: start: 20160226
  8. PARACETAMOL [Concomitant]
     Active Substance: ACETAMINOPHEN
     Indication: PYREXIA
     Dates: start: 20160420, end: 20160421
  9. MEXALEN [Concomitant]
     Active Substance: ACETAMINOPHEN
     Indication: PAIN
  10. RITUXIMAB [Suspect]
     Active Substance: RITUXIMAB
     Indication: DIFFUSE LARGE B-CELL LYMPHOMA
  11. PREDNISONE. [Suspect]
     Active Substance: PREDNISONE
     Indication: B-CELL LYMPHOMA
     Dosage: DOSES PRIOR TO SAES: 01MAR16; 18MAR16; 15APR16; 10MAY16; 31MAY16;16JUN16
     Route: 048
     Dates: start: 20160226
  12. PREDNISONE. [Suspect]
     Active Substance: PREDNISONE
     Indication: DIFFUSE LARGE B-CELL LYMPHOMA
  13. VENETOCLAX [Suspect]
     Active Substance: VENETOCLAX
     Indication: B-CELL LYMPHOMA
     Dosage: DOSES PRIOR TO SAES: 06MAR16; 18MAR16; 11APR16; 19APR16; 16MAY16; 05JUN16; 23JUN16
     Route: 048
     Dates: start: 20160301
  14. VINCRISTINE [Suspect]
     Active Substance: VINCRISTINE
     Indication: DIFFUSE LARGE B-CELL LYMPHOMA
  15. THROMBO ASS [Concomitant]
     Active Substance: ASPIRIN
     Indication: CAROTID ARTERY STENOSIS
  16. PANTOLOC [Concomitant]
     Active Substance: PANTOPRAZOLE SODIUM
     Indication: PRODUCT USED FOR UNKNOWN INDICATION
  17. LOVENOX [Concomitant]
     Active Substance: ENOXAPARIN SODIUM
     Dates: start: 20160423, end: 20160426
  18. CYCLOPHOSPHAMIDE. [Suspect]
     Active Substance: CYCLOPHOSPHAMIDE
     Indication: DIFFUSE LARGE B-CELL LYMPHOMA
  19. DOXORUBICIN [Suspect]
     Active Substance: DOXORUBICIN
     Indication: DIFFUSE LARGE B-CELL LYMPHOMA
  20. LISINOPRIL/HCTZ [Concomitant]
     Active Substance: HYDROCHLOROTHIAZIDE\LISINOPRIL
     Indication: HYPERTENSION
     Dosage: 20/25 MG
  21. THYREX [Concomitant]
     Active Substance: LEVOTHYROXINE SODIUM
     Indication: HYPOTHYROIDISM
  22. RITUXIMAB [Suspect]
     Active Substance: RITUXIMAB
     Indication: B-CELL LYMPHOMA
     Dosage: DOSES PRIOR TO SAES: 27FEB16; 18MAR16; 11APR16; 06MAY16; 27MAY16; 16JUN16
     Route: 042
     Dates: start: 20160226
  23. CYCLOPHOSPHAMIDE. [Suspect]
     Active Substance: CYCLOPHOSPHAMIDE
     Indication: B-CELL LYMPHOMA
     Dosage: DOSES PRIOR TO SAES: 27FEB16; 18MAR16; 11APR16; 06MAY16; 27MAY16; 16JUN16
     Route: 042
     Dates: start: 20160227
  24. ZOFRAN [Concomitant]
     Active Substance: ONDANSETRON HYDROCHLORIDE
     Indication: PROPHYLAXIS OF NAUSEA AND VOMITING
     Dates: start: 20160226
  25. MAGNESIUM SULFATE. [Concomitant]
     Active Substance: MAGNESIUM SULFATE
     Indication: NUTRITIONAL SUPPLEMENTATION
     Dates: start: 20160303, end: 20160303
  26. VENETOCLAX [Suspect]
     Active Substance: VENETOCLAX
     Indication: DIFFUSE LARGE B-CELL LYMPHOMA
  27. LOVENOX [Concomitant]
     Active Substance: ENOXAPARIN SODIUM
     Indication: THROMBOSIS PROPHYLAXIS
     Dates: start: 20160222, end: 20160304
  28. UROMITEXAN [Concomitant]
     Active Substance: MESNA
     Indication: PRODUCT USED FOR UNKNOWN INDICATION
     Dates: start: 20160227
  29. ALLOPURINOL. [Concomitant]
     Active Substance: ALLOPURINOL
     Indication: PROPHYLAXIS
     Dates: start: 20160224
  30. AMLODIPIN [Concomitant]
     Active Substance: AMLODIPINE BESYLATE
     Indication: HYPERTENSION
     Dates: start: 20160227, end: 20160227
  31. VENDAL [Concomitant]
     Indication: PAIN
     Dates: start: 20160421, end: 20160425

REACTIONS (5)
  - Febrile neutropenia [Recovered/Resolved]
  - Neutropenia [Not Recovered/Not Resolved]
  - Neutropenia [Recovered/Resolved]
  - C-reactive protein increased [Recovered/Resolved]
  - C-reactive protein increased [Recovered/Resolved]

NARRATIVE: CASE EVENT DATE: 20160311
